FAERS Safety Report 5150598-3 (Version None)
Quarter: 2006Q4

REPORT INFORMATION
  Report Type: 
  Country: None (occurrence: None)
  Receive Date: 20061114
  Receipt Date: 20061109
  Transmission Date: 20070319
  Serious: Yes (Hospitalization)
  Sender: FDA-Public Use
  Company Number: AU-BRISTOL-MYERS SQUIBB COMPANY-13571773

PATIENT
  Age: 79 Year
  Sex: Female
  Weight: 80 kg

DRUGS (1)
  1. CEFEPIME [Suspect]
     Indication: INFECTION PARASITIC
     Route: 042
     Dates: start: 20050913, end: 20050917

REACTIONS (6)
  - BLOOD CREATININE INCREASED [None]
  - HYPERREFLEXIA [None]
  - MUSCLE TWITCHING [None]
  - MYOCLONUS [None]
  - NERVOUSNESS [None]
  - RENAL IMPAIRMENT [None]
